FAERS Safety Report 6237671-3 (Version None)
Quarter: 2009Q2

REPORT INFORMATION
  Report Type: 
  Country: None (occurrence: None)
  Receive Date: 20090617
  Receipt Date: 20090601
  Transmission Date: 20091009
  Serious: Yes (Other)
  Sender: FDA-Public Use
  Company Number: 2008S1010770

PATIENT
  Age: 59 Year
  Sex: Female
  Weight: 63.5036 kg

DRUGS (21)
  1. PHOSPHOSODA FLAVOR NOT SPECIFIED [Suspect]
     Indication: COLONOSCOPY
     Dosage: 90 ML; TOTAL; PO
     Route: 048
     Dates: start: 20061005, end: 20061005
  2. REMICADE [Concomitant]
  3. ALBUTEROL [Concomitant]
  4. ADVAIR HFA [Concomitant]
  5. NORVASC [Concomitant]
  6. HYDROCHLOROTHIAZIDE [Concomitant]
  7. MIDRIN /00450801/ [Concomitant]
  8. PROTONIX /01263201/ [Concomitant]
  9. VICODIN [Concomitant]
  10. NEURONTIN [Concomitant]
  11. METHOTREXATE [Concomitant]
  12. SYNTHROID [Concomitant]
  13. HYDROXYZINE [Concomitant]
  14. PREMARIN [Concomitant]
  15. EFFEXOR [Concomitant]
  16. DIAZEPAM [Concomitant]
  17. CARAFATE [Concomitant]
  18. FLUOCINONIDE [Concomitant]
  19. FENTANYL-100 [Concomitant]
  20. VERSED [Concomitant]
  21. NULYTELY /01053601/ [Concomitant]

REACTIONS (3)
  - NEPHROCALCINOSIS [None]
  - PERITONEAL DIALYSIS [None]
  - RENAL FAILURE ACUTE [None]
